FAERS Safety Report 20719097 (Version 4)
Quarter: 2023Q1

REPORT INFORMATION
  Report Type: Report from Study
  Country: US (occurrence: US)
  Receive Date: 20220418
  Receipt Date: 20230314
  Transmission Date: 20230418
  Serious: Yes (Other)
  Sender: FDA-Public Use
  Company Number: US-ABBVIE-22K-163-4361316-00

PATIENT
  Age: 44 Year
  Sex: Female
  Weight: 74 kg

DRUGS (6)
  1. HUMIRA [Suspect]
     Active Substance: ADALIMUMAB
     Indication: Rheumatoid arthritis
     Dosage: CITRATE FREE, FORM STRENGTH 40 MILLIGRAM
     Route: 058
     Dates: start: 20211116
  2. HUMIRA [Suspect]
     Active Substance: ADALIMUMAB
     Dosage: CITRATE FREE, 40 MG
     Route: 058
  3. MODERNA COVID-19 VACCINE [Concomitant]
     Active Substance: ELASOMERAN
     Indication: COVID-19 immunisation
     Dosage: TIME INTERVAL: 1 TOTAL: FIRST DOSE
     Route: 030
     Dates: start: 20210502, end: 20210502
  4. MODERNA COVID-19 VACCINE [Concomitant]
     Active Substance: ELASOMERAN
     Indication: COVID-19 immunisation
     Dosage: TIME INTERVAL: 1 TOTAL: SECOND DOSE
     Route: 030
     Dates: start: 20210601, end: 20210601
  5. MODERNA COVID-19 VACCINE [Concomitant]
     Active Substance: ELASOMERAN
     Indication: COVID-19 immunisation
     Dosage: TIME INTERVAL: 1 TOTAL: BOOSTER DOSE
     Route: 030
     Dates: start: 20211217, end: 20211217
  6. ZITHROMAX [Suspect]
     Active Substance: AZITHROMYCIN DIHYDRATE
     Indication: Product used for unknown indication

REACTIONS (12)
  - Systemic lupus erythematosus [Recovering/Resolving]
  - Medical device site pruritus [Recovering/Resolving]
  - Swelling face [Recovering/Resolving]
  - Medical device site swelling [Recovering/Resolving]
  - Nasopharyngitis [Recovering/Resolving]
  - Drug specific antibody present [Unknown]
  - Urinary tract infection [Recovered/Resolved]
  - Medical device site bruise [Recovering/Resolving]
  - Rash erythematous [Recovering/Resolving]
  - Unevaluable event [Unknown]
  - Peripheral swelling [Unknown]
  - Visual impairment [Unknown]

NARRATIVE: CASE EVENT DATE: 20220401
